FAERS Safety Report 7815691-2 (Version None)
Quarter: 2011Q3

REPORT INFORMATION
  Report Type: 
  Country: None (occurrence: None)
  Receive Date: 20110929
  Receipt Date: 20110921
  Transmission Date: 20111222
  Serious: No
  Sender: FDA-Public Use
  Company Number: 003-062

PATIENT
  Age: 26 Year
  Sex: Female
  Weight: 56.6996 kg

DRUGS (7)
  1. PREDNISONE [Concomitant]
  2. LEXAPRO [Concomitant]
  3. CROFAB [Suspect]
     Indication: ACCIDENTAL EXPOSURE
     Dates: start: 20110913, end: 20110913
  4. SYTHROID [Concomitant]
  5. CALCIUM CARBONATE [Concomitant]
  6. CROFAB [Suspect]
  7. CIPROFLOXACIN [Concomitant]

REACTIONS (6)
  - ERYTHEMA [None]
  - THERMAL BURN [None]
  - SOMNOLENCE [None]
  - ACCIDENTAL EXPOSURE [None]
  - RASH [None]
  - URTICARIA [None]
